FAERS Safety Report 8314646-1 (Version None)
Quarter: 2012Q2

REPORT INFORMATION
  Report Type: 
  Country: None (occurrence: None)
  Receive Date: 20120426
  Receipt Date: 20110808
  Transmission Date: 20120825
  Serious: Yes (Other)
  Sender: FDA-Public Use
  Company Number: US-TEVA-US024430

PATIENT
  Sex: Male
  Weight: 89 kg

DRUGS (3)
  1. ZOLPIDEM [Concomitant]
     Indication: SLEEP DISORDER
     Dosage: 5 MILLIGRAM;
     Route: 048
  2. PROVIGIL [Suspect]
     Indication: ASTHENIA
     Route: 048
     Dates: start: 20070601
  3. VALIUM [Concomitant]
     Indication: ANXIETY
     Route: 048

REACTIONS (7)
  - PRODUCT TAMPERING [None]
  - FEELING COLD [None]
  - CHEST PAIN [None]
  - HALLUCINATION [None]
  - DYSPNOEA [None]
  - DRUG INEFFECTIVE FOR UNAPPROVED INDICATION [None]
  - HEADACHE [None]
